FAERS Safety Report 7829314-X (Version None)
Quarter: 2011Q4

REPORT INFORMATION
  Report Type: 
  Country: None (occurrence: None)
  Receive Date: 20111020
  Receipt Date: 20111011
  Transmission Date: 20120403
  Serious: Yes (Hospitalization)
  Sender: FDA-Public Use
  Company Number: US-SANOFI-AVENTIS-2011SA066745

PATIENT
  Age: 46 Year
  Sex: Male

DRUGS (4)
  1. NOVOLOG [Concomitant]
     Dosage: DOSE:60 UNIT(S)
  2. SYNTHROID [Concomitant]
  3. LANTUS [Suspect]
     Dosage: DOSE:20 UNIT(S)
     Route: 058
     Dates: start: 20110505
  4. LANTUS [Suspect]
     Dosage: IN AM DOSE:40 UNIT(S)
     Route: 058
     Dates: start: 20110405

REACTIONS (7)
  - DYSARTHRIA [None]
  - RESPIRATORY DISORDER [None]
  - MUSCULAR WEAKNESS [None]
  - LETHARGY [None]
  - CARDIAC FAILURE CONGESTIVE [None]
  - SLEEP DISORDER [None]
  - SWELLING [None]
